FAERS Safety Report 19593210 (Version 4)
Quarter: 2021Q3

REPORT INFORMATION
  Report Type: Spontaneous
  Country: CZ (occurrence: CZ)
  Receive Date: 20210722
  Receipt Date: 20210930
  Transmission Date: 20211014
  Serious: Yes (Hospitalization)
  Sender: FDA-Public Use
  Company Number: NVSC2021CZ164179

PATIENT
  Age: 19 Year
  Sex: Female
  Weight: 42 kg

DRUGS (3)
  1. OLANZAPINE. [Suspect]
     Active Substance: OLANZAPINE
     Indication: MENTAL DISORDER
  2. OLANZAPINE. [Suspect]
     Active Substance: OLANZAPINE
     Indication: PSYCHOTHERAPY
     Dosage: 10 MG, QD (IN A SINGLE EVENING DOSE)
     Route: 065
  3. OLANZAPINE. [Suspect]
     Active Substance: OLANZAPINE
     Indication: PSYCHOTIC DISORDER
     Dosage: UNK (DOSE INCREASED)
     Route: 065

REACTIONS (3)
  - Obsessive-compulsive disorder [Recovered/Resolved]
  - Drug ineffective [Unknown]
  - Concomitant disease aggravated [Unknown]
